FAERS Safety Report 8139607-7 (Version None)
Quarter: 2012Q1

REPORT INFORMATION
  Report Type: 
  Country: None (occurrence: None)
  Receive Date: 20120215
  Receipt Date: 20120201
  Transmission Date: 20120608
  Serious: Yes (Other)
  Sender: FDA-Public Use
  Company Number: PHHO2007MX13834

PATIENT
  Sex: Female

DRUGS (10)
  1. METOCLOPRAMIDE [Concomitant]
     Indication: HYPERTENSION
     Dosage: 1 DF, BID
  2. NAPROXEN [Concomitant]
     Indication: LORDOSIS
  3. PROTEC [Concomitant]
     Indication: MYOCARDIAL INFARCTION
  4. LOSARTAN POTASSIUM [Concomitant]
     Indication: HYPERTENSION
  5. PRAVASTATIN [Concomitant]
     Indication: BLOOD CHOLESTEROL INCREASED
     Dosage: 2 DF, QD
  6. NAPROXEN [Concomitant]
     Indication: SCOLIOSIS
  7. LAMISIL [Suspect]
     Indication: ONYCHOMYCOSIS
     Dosage: 250 MG, QD
     Route: 048
     Dates: start: 20060301, end: 20070801
  8. NIFEDIPINE [Concomitant]
     Indication: HYPERTENSION
     Dosage: 1 DF, BID
  9. ISOSORBIDE DINITRATE [Concomitant]
     Indication: BLOOD CHOLESTEROL INCREASED
     Dosage: 2 DF, QD
  10. PIROXICAM [Concomitant]
     Dosage: 1 DF, QD

REACTIONS (6)
  - ABDOMINAL PAIN UPPER [None]
  - SCIATICA [None]
  - ARTHRALGIA [None]
  - BACK PAIN [None]
  - GALLBLADDER DISORDER [None]
  - ONYCHOMYCOSIS [None]
